FAERS Safety Report 5624959-X (Version None)
Quarter: 2008Q1

REPORT INFORMATION
  Report Type: 
  Country: None (occurrence: None)
  Receive Date: 20080213
  Receipt Date: 20080201
  Transmission Date: 20080703
  Serious: Yes (Death, Other)
  Sender: FDA-Public Use
  Company Number: GB-PFIZER INC-2008001294

PATIENT
  Age: 66 Year
  Sex: Female

DRUGS (4)
  1. PHENYTOIN [Suspect]
     Indication: CONVULSION
  2. DEXAMETHASONE TAB [Interacting]
     Indication: CONVULSION
  3. METFORMIN HCL [Concomitant]
  4. AMLODIPINE [Concomitant]

REACTIONS (5)
  - BRAIN COMPRESSION [None]
  - DRUG INTERACTION [None]
  - GLASGOW COMA SCALE ABNORMAL [None]
  - HAEMORRHAGE INTRACRANIAL [None]
  - THROMBOCYTOPENIA [None]
